FAERS Safety Report 4548824-4 (Version None)
Quarter: 2004Q4

REPORT INFORMATION
  Report Type: 
  Country: None (occurrence: None)
  Receive Date: 20041227
  Receipt Date: 20041109
  Transmission Date: 20050328
  Serious: No
  Sender: FDA-Public Use
  Company Number: 04P-163-0253876-00

PATIENT
  Age: 67 Year
  Sex: Female
  Weight: 40.8237 kg

DRUGS (7)
  1. HUMIRA [Suspect]
     Indication: RHEUMATOID ARTHRITIS
     Dosage: SEE IMAGE
     Route: 058
     Dates: start: 20040101, end: 20040401
  2. HUMIRA [Suspect]
     Indication: RHEUMATOID ARTHRITIS
     Dosage: SEE IMAGE
     Route: 058
     Dates: start: 20040401
  3. METHOTREXATE [Concomitant]
  4. FOLINIC ACID [Concomitant]
  5. IBUPROFEN [Concomitant]
  6. ALENDRONATE SODIUM [Concomitant]
  7. PREDNISONE [Concomitant]

REACTIONS (3)
  - DRY SKIN [None]
  - INCREASED TENDENCY TO BRUISE [None]
  - WEIGHT DECREASED [None]
